FAERS Safety Report 6894719-0 (Version None)
Quarter: 2010Q3

REPORT INFORMATION
  Report Type: 
  Country: None (occurrence: None)
  Receive Date: 20100730
  Receipt Date: 20100730
  Transmission Date: 20110219
  Serious: Yes (Other)
  Sender: FDA-Public Use
  Company Number: None

PATIENT
  Sex: Male
  Weight: 70.7611 kg

DRUGS (2)
  1. LOTREL [Suspect]
     Indication: HYPERTENSION
     Dosage: 1 TAB QD P.O.
     Route: 048
     Dates: start: 20010813
  2. LOTREL [Suspect]
     Indication: HYPERTENSION
     Dosage: 1 TAB QD P.O.
     Route: 048
     Dates: start: 20060306

REACTIONS (1)
  - COUGH [None]
